FAERS Safety Report 11927693 (Version 2)
Quarter: 2016Q1

REPORT INFORMATION
  Report Type: Report from Study
  Country: DE (occurrence: DE)
  Receive Date: 20160119
  Receipt Date: 20160121
  Transmission Date: 20160526
  Serious: Yes (Other)
  Sender: FDA-Public Use
  Company Number: PHHY2016DE005923

PATIENT
  Sex: Male

DRUGS (3)
  1. TORASEMIDE [Concomitant]
     Active Substance: TORSEMIDE
     Indication: PRODUCT USED FOR UNKNOWN INDICATION
     Route: 065
  2. TASIGNA [Suspect]
     Active Substance: NILOTINIB
     Indication: CHRONIC MYELOID LEUKAEMIA
     Dosage: 800 MG, QD
     Route: 065
     Dates: start: 20140506, end: 20150817
  3. ASPIRIN. [Concomitant]
     Active Substance: ASPIRIN
     Indication: PRODUCT USED FOR UNKNOWN INDICATION
     Dosage: 100 OT
     Route: 065

REACTIONS (2)
  - Concomitant disease aggravated [Not Recovered/Not Resolved]
  - Dementia [Not Recovered/Not Resolved]

NARRATIVE: CASE EVENT DATE: 20150114
